FAERS Safety Report 14280623 (Version 3)
Quarter: 2018Q1

REPORT INFORMATION
  Report Type: Spontaneous
  Country: JP (occurrence: JP)
  Receive Date: 20171213
  Receipt Date: 20180327
  Transmission Date: 20180508
  Serious: Yes (Other)
  Sender: FDA-Public Use
  Company Number: JP-ASTELLAS-2017JP024080AA

PATIENT
  Age: 79 Year
  Sex: Female

DRUGS (1)
  1. BETANIS [Suspect]
     Active Substance: MIRABEGRON
     Indication: PRODUCT USED FOR UNKNOWN INDICATION
     Route: 048

REACTIONS (1)
  - Interstitial lung disease [Recovered/Resolved]
